FAERS Safety Report 13695755 (Version 1)
Quarter: 2017Q2

REPORT INFORMATION
  Report Type: Spontaneous
  Country: IT (occurrence: IT)
  Receive Date: 20170627
  Receipt Date: 20170627
  Transmission Date: 20170830
  Serious: Yes (Hospitalization)
  Sender: FDA-Public Use
  Company Number: PHHY2017IT091410

PATIENT
  Age: 62 Year
  Sex: Female

DRUGS (2)
  1. ACETYLSALICYLIC ACID [Suspect]
     Active Substance: ASPIRIN
     Indication: ARTHRALGIA
     Dosage: 160 MG, UNK
     Route: 065
  2. PIROXICAM. [Suspect]
     Active Substance: PIROXICAM
     Indication: ARTHRALGIA
     Dosage: 20 MG, UNK
     Route: 030

REACTIONS (5)
  - Erosive duodenitis [Unknown]
  - Drug prescribing error [Unknown]
  - Haematemesis [Unknown]
  - Melaena [Unknown]
  - Gastric ulcer [Unknown]
